FAERS Safety Report 18172370 (Version 4)
Quarter: 2024Q2

REPORT INFORMATION
  Report Type: Other
  Country: US (occurrence: None)
  Receive Date: 20200820
  Receipt Date: 20240530
  Transmission Date: 20240715
  Serious: Yes (Hospitalization)
  Sender: FDA-Public Use
  Company Number: US-ROCHE-2659948

PATIENT
  Age: 50 Year
  Sex: Female
  Weight: 68.1 kg

DRUGS (7)
  1. OCREVUS [Suspect]
     Active Substance: OCRELIZUMAB
     Indication: Multiple sclerosis
     Dosage: VEINS AND ARMS ; ONGOING : NO
     Route: 042
     Dates: start: 20190101
  2. OCREVUS [Suspect]
     Active Substance: OCRELIZUMAB
     Dosage: 300 MG DAY 1 AND THEN DAY 15
     Route: 042
  3. OCREVUS [Suspect]
     Active Substance: OCRELIZUMAB
     Route: 042
     Dates: start: 20180712, end: 20210123
  4. VITAMIN C [Concomitant]
     Active Substance: ASCORBIC ACID
     Route: 048
     Dates: start: 20200810
  5. ACETAMINOPHEN [Concomitant]
     Active Substance: ACETAMINOPHEN
     Dosage: 2 TABLETS EVERY 6 HOURS
     Route: 048
     Dates: start: 20200810
  6. GABAPENTIN [Concomitant]
     Active Substance: GABAPENTIN
     Route: 048
     Dates: start: 20200810
  7. HYDROCODONE [Concomitant]
     Active Substance: HYDROCODONE
     Indication: Pain
     Dosage: 2 CAPSULES EVERY 6 HOURS ; ONGOING : YES
     Route: 048
     Dates: start: 20200812

REACTIONS (5)
  - Ulcer [Not Recovered/Not Resolved]
  - Haematological infection [Recovered/Resolved]
  - Pain [Recovered/Resolved]
  - Blood iron decreased [Unknown]
  - Movement disorder [Not Recovered/Not Resolved]

NARRATIVE: CASE EVENT DATE: 20200301
